FAERS Safety Report 21625845 (Version 2)
Quarter: 2023Q4

REPORT INFORMATION
  Report Type: Spontaneous
  Country: US (occurrence: US)
  Receive Date: 20221122
  Receipt Date: 20231109
  Transmission Date: 20240110
  Serious: No
  Sender: FDA-Public Use
  Company Number: US-INSMED, INC.-2022-02281-US

PATIENT
  Sex: Male

DRUGS (1)
  1. ARIKAYCE [Suspect]
     Active Substance: AMIKACIN
     Indication: Pneumonia
     Dosage: 590 MILLIGRAM, QD
     Route: 055
     Dates: start: 20220525

REACTIONS (1)
  - Intentional dose omission [Unknown]
